FAERS Safety Report 14859751 (Version 1)
Quarter: 2018Q2

REPORT INFORMATION
  Report Type: Spontaneous
  Country: US (occurrence: US)
  Receive Date: 20180508
  Receipt Date: 20180508
  Transmission Date: 20180711
  Serious: No
  Sender: FDA-Public Use
  Company Number: US-PFIZER INC-2018186873

PATIENT
  Age: 51 Year
  Sex: Female

DRUGS (1)
  1. GLUCOSE [Suspect]
     Active Substance: DEXTROSE
     Dosage: UNK

REACTIONS (1)
  - Drug intolerance [Unknown]
